FAERS Safety Report 8256531-X (Version None)
Quarter: 2012Q2

REPORT INFORMATION
  Report Type: 
  Country: None (occurrence: None)
  Receive Date: 20120403
  Receipt Date: 20120322
  Transmission Date: 20120825
  Serious: Yes (Hospitalization, Other)
  Sender: FDA-Public Use
  Company Number: GB-MUTUAL PHARMACEUTICAL COMPANY, INC.-QNSF20120007

PATIENT
  Age: 52 Year
  Sex: Male

DRUGS (6)
  1. NEVIRAPINE [Suspect]
     Route: 065
  2. QUININE SULFATE [Suspect]
     Route: 048
  3. CLARITHROMYCIN [Concomitant]
     Route: 065
  4. ABACAVIR/LAMIVUDINE (KIVEXA) [Concomitant]
     Route: 065
  5. AMOXICILLIN AND CLAVULANATE POTASSIUM [Concomitant]
     Route: 065
  6. AMLODIPINE [Concomitant]
     Route: 065

REACTIONS (3)
  - DRUG LEVEL BELOW THERAPEUTIC [None]
  - INFECTION PARASITIC [None]
  - DRUG INTERACTION [None]
